FAERS Safety Report 8207906-6 (Version None)
Quarter: 2012Q1

REPORT INFORMATION
  Report Type: 
  Country: None (occurrence: None)
  Receive Date: 20120314
  Receipt Date: 20120305
  Transmission Date: 20120608
  Serious: Yes (Other)
  Sender: FDA-Public Use
  Company Number: FR-ASTRAZENECA-2012SE15855

PATIENT
  Age: 5 Year
  Sex: Male
  Weight: 21.3 kg

DRUGS (3)
  1. MINIRIN [Suspect]
     Route: 042
     Dates: start: 20120117, end: 20120117
  2. EMLA [Suspect]
     Route: 062
     Dates: start: 20120117, end: 20120117
  3. MIDAZOLAM [Suspect]
     Route: 060
     Dates: start: 20120117, end: 20120117

REACTIONS (6)
  - LIP OEDEMA [None]
  - HYPERTHERMIA [None]
  - TONGUE OEDEMA [None]
  - RASH [None]
  - FACE OEDEMA [None]
  - ANGIOEDEMA [None]
